FAERS Safety Report 6103411-1 (Version None)
Quarter: 2009Q1

REPORT INFORMATION
  Report Type: 
  Country: None (occurrence: None)
  Receive Date: 20090305
  Receipt Date: 20090219
  Transmission Date: 20090719
  Serious: Yes (Other)
  Sender: FDA-Public Use
  Company Number: PHHY2009BR06123

PATIENT
  Sex: Female
  Weight: 60 kg

DRUGS (4)
  1. DIOVAN HCT [Suspect]
     Indication: HYPERTENSION
     Dosage: 1 TABLET (80/12.5 MG) A DAY
     Route: 048
  2. DIOVAN HCT [Suspect]
     Dosage: 1 TABLET  (160/12.5 MG) IN THE MORNING
     Route: 048
     Dates: start: 20081201
  3. DIOVAN HCT [Suspect]
     Dosage: 1 TABLET (160/12.5 MG) IN MORNING AND 1 TABLET AT NIGHT
     Route: 048
  4. PURAN T4 [Concomitant]
     Indication: THYROID DISORDER
     Dosage: 1 TABLET (75 MG) A DAY
     Route: 048

REACTIONS (6)
  - ARRHYTHMIA [None]
  - BLOOD PRESSURE FLUCTUATION [None]
  - FATIGUE [None]
  - HYPERTENSION [None]
  - HYPOTENSION [None]
  - INSOMNIA [None]
